FAERS Safety Report 5770312-8 (Version None)
Quarter: 2008Q2

REPORT INFORMATION
  Report Type: 
  Country: None (occurrence: None)
  Receive Date: 20080613
  Receipt Date: 20080424
  Transmission Date: 20081010
  Serious: No
  Sender: FDA-Public Use
  Company Number: US-ABBOTT-08P-163-0448947-00

PATIENT
  Sex: Female
  Weight: 65.83 kg

DRUGS (20)
  1. HUMIRA [Suspect]
     Indication: RHEUMATOID ARTHRITIS
     Route: 058
     Dates: start: 20080312
  2. ESTROGENS CONJUGATED [Concomitant]
     Indication: BONE DISORDER
     Route: 048
  3. DULOXETINE HYDROCHLORIDE [Concomitant]
     Indication: FATIGUE
     Route: 048
  4. DULOXETINE HYDROCHLORIDE [Concomitant]
     Indication: ARTHRITIS
  5. AMITRIPTYLINE HCL [Concomitant]
     Indication: SLEEP DISORDER
     Route: 048
  6. TRIAMETERINE/HCTZ [Concomitant]
     Indication: HYPERTENSION
     Dosage: 37.5/25 MG DAILY
     Route: 048
  7. DILTIAZEM [Concomitant]
     Indication: HYPERTENSION
     Route: 048
  8. MONTELUKAST SODIUM [Concomitant]
     Indication: HOUSE DUST ALLERGY
     Route: 048
  9. HYDROCHLOROQUINE [Concomitant]
     Indication: RHEUMATOID ARTHRITIS
     Route: 048
  10. CEVIMELINE HYDROCHLORIDE [Concomitant]
     Indication: SALIVARY GLAND DISORDER
     Route: 048
  11. LOVASTATIN [Concomitant]
     Indication: BLOOD CHOLESTEROL INCREASED
     Route: 048
  12. OMEPRAZOLE [Concomitant]
     Indication: PROPHYLAXIS AGAINST GASTROINTESTINAL ULCER
     Route: 048
  13. METHOTREXATE [Concomitant]
     Indication: RHEUMATOID ARTHRITIS
     Route: 048
  14. METOPROLOL [Concomitant]
     Indication: HYPERTENSION
     Route: 048
  15. TRAMADOL HCL [Concomitant]
     Indication: PAIN
     Route: 048
  16. FOLIC ACID [Concomitant]
     Indication: RHEUMATOID ARTHRITIS
     Route: 048
  17. IBANDRONATE SODIUM [Concomitant]
     Indication: OSTEOPENIA
     Route: 048
  18. MACROGOL [Concomitant]
     Indication: CONSTIPATION
     Route: 048
  19. FISH OIL [Concomitant]
     Indication: DRUG USE FOR UNKNOWN INDICATION
     Route: 048
  20. METOPROLOL TARTRATE [Concomitant]
     Indication: HYPERTENSION
     Route: 048

REACTIONS (4)
  - INJECTION SITE BRUISING [None]
  - INJECTION SITE HAEMORRHAGE [None]
  - INJECTION SITE IRRITATION [None]
  - INJECTION SITE PAIN [None]
